FAERS Safety Report 7916790-7 (Version None)
Quarter: 2011Q4

REPORT INFORMATION
  Report Type: 
  Country: None (occurrence: None)
  Receive Date: 20111116
  Receipt Date: 20111104
  Transmission Date: 20120403
  Serious: Yes (Hospitalization, Disabling)
  Sender: FDA-Public Use
  Company Number: US-BAYER-2011-004045

PATIENT
  Age: 34 Year
  Sex: Female
  Weight: 100 kg

DRUGS (7)
  1. AZITHROMYCIN [Concomitant]
     Dosage: 500 MG, UNK
     Dates: start: 20060801
  2. FUROSEMIDE [Concomitant]
     Dosage: 20 MG, UNK
     Dates: start: 20060801
  3. YASMIN [Suspect]
     Dosage: UNK
     Dates: start: 20030514, end: 20100702
  4. OMEPRAZOLE [Concomitant]
     Dosage: 10 MG, UNK
     Dates: start: 20060901
  5. DROSPIRENONE AND ETHINYL ESTRADIOL [Suspect]
     Dosage: UNK
     Dates: start: 20080804, end: 20080904
  6. DICYCLOMINE [Concomitant]
     Dosage: 10 MG, UNK
     Dates: start: 20060901
  7. NSAID'S [Concomitant]

REACTIONS (4)
  - GALLBLADDER DISORDER [None]
  - CHOLECYSTITIS ACUTE [None]
  - EMOTIONAL DISTRESS [None]
  - HAEMOBILIA [None]
